FAERS Safety Report 18971745 (Version 3)
Quarter: 2021Q2

REPORT INFORMATION
  Report Type: Spontaneous
  Country: DE (occurrence: DE)
  Receive Date: 20210305
  Receipt Date: 20210518
  Transmission Date: 20210717
  Serious: Yes (Other)
  Sender: FDA-Public Use
  Company Number: DE-AUROBINDO-AUR-APL-2021-008655

PATIENT
  Age: 71 Year
  Sex: Female
  Weight: 126 kg

DRUGS (13)
  1. PALEXIA [Concomitant]
     Active Substance: TAPENTADOL HYDROCHLORIDE
     Indication: PAIN
     Dosage: 100 MILLIGRAM, TWO TIMES A DAY
     Route: 048
  2. L?THYROX [Concomitant]
     Active Substance: LEVOTHYROXINE SODIUM
     Indication: HYPOTHYROIDISM
     Dosage: 125 MICROGRAM, DAILY
     Route: 048
  3. ALLOPURINOL. [Concomitant]
     Active Substance: ALLOPURINOL
     Indication: BLOOD URIC ACID INCREASED
     Dosage: 100 MILLIGRAM, DAILY
     Route: 048
  4. WILD OREGANO [Concomitant]
     Indication: MEDICAL DIET
     Dosage: UNK UNK, DAILY
     Route: 048
  5. LOSARTAN. [Concomitant]
     Active Substance: LOSARTAN
     Indication: HYPERTENSION
     Dosage: 100 MILLIGRAM, DAILY
     Route: 048
  6. MSM [Concomitant]
     Active Substance: DIMETHYL SULFONE
     Indication: MEDICAL DIET
     Dosage: UNK UNK, DAILY
     Route: 048
  7. DULOXETIN PUREN GASTRO RESISTANT CAPSULES, HARD 30 MG [Suspect]
     Active Substance: DULOXETINE
     Indication: PAIN
     Dosage: 30 MILLIGRAM
     Route: 048
     Dates: start: 202012, end: 20210110
  8. GRIFFONIA [Concomitant]
     Indication: MEDICAL DIET
     Dosage: UNK UNK, DAILY
     Route: 048
  9. DULOXETIN PUREN GASTRO RESISTANT CAPSULES, HARD 30 MG [Suspect]
     Active Substance: DULOXETINE
     Indication: DEPRESSION
  10. METOPROLOL SUCCINATE. [Concomitant]
     Active Substance: METOPROLOL SUCCINATE
     Indication: HYPERTENSION
     Dosage: 47.5 MILLIGRAM
     Route: 048
  11. CURCUMA [Concomitant]
     Active Substance: HERBALS\TURMERIC
     Indication: MEDICAL DIET
     Dosage: UNK UNK, DAILY
     Route: 048
  12. TORASEMIDE [Concomitant]
     Active Substance: TORSEMIDE
     Indication: HYPERTENSION
     Dosage: 10 MILLIGRAM, DAILY
     Route: 048
  13. VITAMIN D [Concomitant]
     Active Substance: VITAMIN D NOS
     Indication: MEDICAL DIET
     Dosage: UNK UNK, DAILY
     Route: 048

REACTIONS (12)
  - Insomnia [Recovered/Resolved]
  - Dyslalia [Recovered/Resolved]
  - Mental impairment [Recovered/Resolved]
  - Fatigue [Recovered/Resolved]
  - Somnambulism [Recovered/Resolved]
  - Motor dysfunction [Recovered/Resolved]
  - Asthenia [Recovered/Resolved]
  - Product dose omission issue [Unknown]
  - Loss of personal independence in daily activities [Recovered/Resolved]
  - Depressed mood [Recovered/Resolved]
  - Metabolic disorder [Recovered/Resolved]
  - Weight decreased [Recovered/Resolved]

NARRATIVE: CASE EVENT DATE: 202012
